FAERS Safety Report 5079222-5 (Version None)
Quarter: 2006Q3

REPORT INFORMATION
  Report Type: 
  Country: None (occurrence: None)
  Receive Date: 20060814
  Receipt Date: 20060803
  Transmission Date: 20061208
  Serious: Yes (Hospitalization)
  Sender: FDA-Public Use
  Company Number: FR-MERCK-0608FRA00005

PATIENT
  Age: 30 Year
  Sex: Male

DRUGS (5)
  1. PRIMAXIN [Suspect]
     Indication: SEPTIC SHOCK
     Route: 042
     Dates: start: 20060621, end: 20060625
  2. PRIMAXIN [Suspect]
     Route: 042
     Dates: start: 20060626
  3. CIPROFLOXACIN HYDROCHLORIDE [Suspect]
     Indication: SEPTIC SHOCK
     Route: 042
     Dates: start: 20060621
  4. FUROSEMIDE [Suspect]
     Route: 042
     Dates: start: 20060621, end: 20060627
  5. NEFOPAM HYDROCHLORIDE [Suspect]
     Indication: PAIN
     Route: 042
     Dates: start: 20060621

REACTIONS (2)
  - RENAL FAILURE [None]
  - STATUS EPILEPTICUS [None]
